FAERS Safety Report 10643508 (Version 3)
Quarter: 2015Q1

REPORT INFORMATION
  Report Type: Spontaneous
  Country: US (occurrence: US)
  Receive Date: 20141210
  Receipt Date: 20150302
  Transmission Date: 20150720
  Serious: Yes (Death, Hospitalization, Other)
  Sender: FDA-Public Use
  Company Number: US-ASTELLAS-2014US019823

PATIENT
  Age: 79 Year
  Sex: Male

DRUGS (2)
  1. XTANDI [Suspect]
     Active Substance: ENZALUTAMIDE
     Indication: PROSTATE CANCER METASTATIC
     Route: 048
     Dates: start: 20140606, end: 20140818
  2. PLAVIX [Concomitant]
     Active Substance: CLOPIDOGREL BISULFATE
     Indication: CEREBROVASCULAR ACCIDENT
     Dosage: UNK UNK, UNKNOWN FREQ.
     Route: 065

REACTIONS (6)
  - Urinary tract infection [Fatal]
  - Myocardial infarction [Fatal]
  - Malignant neoplasm progression [Fatal]
  - Sepsis [Fatal]
  - Gastrointestinal haemorrhage [Fatal]
  - Metastatic carcinoma of the bladder [Fatal]

NARRATIVE: CASE EVENT DATE: 201409
